FAERS Safety Report 9197443 (Version 1)
Quarter: 2013Q1

REPORT INFORMATION
  Report Type: Report from Study
  Country: JP (occurrence: JP)
  Receive Date: 20130328
  Receipt Date: 20130328
  Transmission Date: 20140127
  Serious: Yes (Life-Threatening)
  Sender: FDA-Public Use
  Company Number: JP-GLAXOSMITHKLINE-B0672244A

PATIENT
  Age: 57 Year
  Sex: Female
  Weight: 50 kg

DRUGS (10)
  1. TYKERB [Suspect]
     Indication: BREAST CANCER
     Route: 048
     Dates: start: 20100803, end: 20100825
  2. XELODA [Concomitant]
     Route: 048
     Dates: start: 20100803, end: 20100825
  3. DIGOXIN [Concomitant]
     Indication: CARDIAC FAILURE
     Route: 048
     Dates: start: 20100722, end: 20100830
  4. VASOLAN [Concomitant]
     Indication: TACHYCARDIA PAROXYSMAL
     Route: 048
     Dates: start: 20100722, end: 20100830
  5. FUROSEMIDE [Concomitant]
     Indication: CARDIAC FAILURE
     Route: 048
     Dates: start: 20100722, end: 20100830
  6. ALDACTONE A [Concomitant]
     Indication: CARDIAC FAILURE
     Route: 048
     Dates: start: 20100722, end: 20100830
  7. RINDERON [Concomitant]
     Indication: MALAISE
     Route: 042
     Dates: start: 20100722, end: 20100901
  8. DESLANOSIDE [Concomitant]
     Indication: CARDIAC FAILURE
     Dates: start: 20100831, end: 20100901
  9. FLUMARIN [Concomitant]
     Indication: PNEUMONIA
     Route: 042
     Dates: start: 20100825, end: 20100830
  10. ZOSYN [Concomitant]
     Indication: PNEUMONIA
     Route: 042
     Dates: start: 20100830, end: 20100901

REACTIONS (8)
  - Interstitial lung disease [Not Recovered/Not Resolved]
  - Pulmonary oedema [Unknown]
  - Pericardial effusion [Not Recovered/Not Resolved]
  - Pneumonia [Not Recovered/Not Resolved]
  - Diarrhoea [Recovering/Resolving]
  - Stomatitis [Not Recovered/Not Resolved]
  - Palmar-plantar erythrodysaesthesia syndrome [Unknown]
  - Hepatic function abnormal [Not Recovered/Not Resolved]
